FAERS Safety Report 4840303-X (Version None)
Quarter: 2005Q4

REPORT INFORMATION
  Report Type: 
  Country: None (occurrence: None)
  Receive Date: 20051021
  Receipt Date: 20050728
  Transmission Date: 20060501
  Serious: Yes (Other)
  Sender: FDA-Public Use
  Company Number: 2005109564

PATIENT

DRUGS (1)
  1. INSPRA [Suspect]
     Indication: ILL-DEFINED DISORDER

REACTIONS (1)
  - BLOOD SODIUM INCREASED [None]
